FAERS Safety Report 25201153 (Version 1)
Quarter: 2025Q2

REPORT INFORMATION
  Report Type: Spontaneous
  Country: US (occurrence: US)
  Receive Date: 20250416
  Receipt Date: 20250416
  Transmission Date: 20250716
  Serious: No
  Sender: SANOFI AVENTIS
  Company Number: US-SA-2025SA108625

PATIENT
  Age: 58 Year
  Sex: Female
  Weight: 89.55 kg

DRUGS (3)
  1. KEVZARA [Suspect]
     Active Substance: SARILUMAB
     Indication: Rheumatoid arthritis
     Dosage: 200 MG, QOW
     Route: 058
     Dates: start: 20250228
  2. ARAVA [Concomitant]
     Active Substance: LEFLUNOMIDE
  3. GABAPENTIN [Concomitant]
     Active Substance: GABAPENTIN

REACTIONS (3)
  - Aphthous ulcer [Unknown]
  - Oral pain [Unknown]
  - Wound [Unknown]

NARRATIVE: CASE EVENT DATE: 20250101
